FAERS Safety Report 19936463 (Version 5)
Quarter: 2025Q1

REPORT INFORMATION
  Report Type: Report from Study
  Country: US (occurrence: US)
  Receive Date: 20211009
  Receipt Date: 20250320
  Transmission Date: 20250408
  Serious: Yes (Life-Threatening, Other)
  Sender: TAKEDA
  Company Number: US-TAKEDA-2021TUS060569

PATIENT
  Age: 78 Year
  Sex: Male

DRUGS (23)
  1. TEDUGLUTIDE [Suspect]
     Active Substance: TEDUGLUTIDE
     Indication: Short-bowel syndrome
     Dosage: 1.95 MILLIGRAM, QD
     Dates: start: 201805, end: 201808
  2. TEDUGLUTIDE [Suspect]
     Active Substance: TEDUGLUTIDE
  3. TEDUGLUTIDE [Suspect]
     Active Substance: TEDUGLUTIDE
  4. TEDUGLUTIDE [Suspect]
     Active Substance: TEDUGLUTIDE
  5. COUMADIN [Concomitant]
     Active Substance: WARFARIN SODIUM
     Indication: Hypercoagulation
  6. ULTRAM [Concomitant]
     Active Substance: TRAMADOL HYDROCHLORIDE
     Indication: Osteoporosis
  7. THIAMINE HYDROCHLORIDE [Concomitant]
     Active Substance: THIAMINE HYDROCHLORIDE
     Indication: Hypovitaminosis
     Dosage: 100 MILLIGRAM, QD
     Dates: start: 20161115, end: 20181031
  8. CREON [Concomitant]
     Active Substance: PANCRELIPASE AMYLASE\PANCRELIPASE LIPASE\PANCRELIPASE PROTEASE
     Indication: Malabsorption
     Dosage: 2 DOSAGE FORM, TID
     Dates: start: 20180119
  9. ASPIRIN [Concomitant]
     Active Substance: ASPIRIN
     Indication: Short-bowel syndrome
     Dosage: 81 MILLIGRAM, QD
     Dates: start: 20170823, end: 20181113
  10. TUMS [Concomitant]
     Active Substance: CALCIUM CARBONATE
     Indication: Short-bowel syndrome
     Dosage: 1000 MILLIGRAM, TID
     Dates: start: 20170823
  11. COREG [Concomitant]
     Active Substance: CARVEDILOL
     Indication: Hypertension
     Dosage: 3.13 MILLIGRAM, QD
     Dates: start: 20160720
  12. CYANOCOBALAMIN [Concomitant]
     Active Substance: CYANOCOBALAMIN
     Indication: Hypovitaminosis
     Dosage: 1000 MICROGRAM, QD
     Dates: start: 20161130
  13. DIGOX [Concomitant]
     Active Substance: DIGOXIN
     Indication: Hypertension
     Dosage: 125 MICROGRAM, QD
     Dates: start: 20151118
  14. ERGOCALCIFEROL [Concomitant]
     Active Substance: ERGOCALCIFEROL
     Indication: Hypovitaminosis
     Dosage: 5000 INTERNATIONAL UNIT, BIDO
     Dates: start: 20161111
  15. PEPCID [Concomitant]
     Active Substance: FAMOTIDINE
     Indication: Short-bowel syndrome
     Dosage: 20 MILLIGRAM, QD
     Dates: start: 20160226
  16. Sympt X [Concomitant]
     Indication: Short-bowel syndrome
     Dosage: 16 GRAM, QD
     Dates: start: 20150204, end: 20181031
  17. LISINOPRIL [Concomitant]
     Active Substance: LISINOPRIL
     Indication: Hypertension
     Dosage: 2.50 MILLIGRAM, QD
     Dates: start: 20160921, end: 20181031
  18. IMODIUM [Concomitant]
     Active Substance: LOPERAMIDE HYDROCHLORIDE
     Indication: Malabsorption
     Dosage: 4 MILLIGRAM, QID
     Dates: start: 20180228
  19. Magonate [Concomitant]
     Indication: Hypomagnesaemia
     Dosage: 500 MILLIGRAM, QD
     Dates: start: 20171010, end: 20181010
  20. MAGNESIUM SULFATE [Concomitant]
     Active Substance: MAGNESIUM SULFATE
     Indication: Hypomagnesaemia
  21. FISH OIL\OMEGA-3 FATTY ACIDS [Concomitant]
     Active Substance: FISH OIL\OMEGA-3 FATTY ACIDS
     Indication: Fatty acid deficiency
  22. LOPERAMIDE [Concomitant]
     Active Substance: LOPERAMIDE
     Indication: Diarrhoea
     Dosage: 2 MILLIGRAM, QID
     Dates: start: 20221224
  23. NALOXONE HCL [Concomitant]
     Active Substance: NALOXONE HYDROCHLORIDE
     Indication: Short-bowel syndrome
     Dates: start: 20221224, end: 20221224

REACTIONS (1)
  - Adenocarcinoma metastatic [Not Recovered/Not Resolved]

NARRATIVE: CASE EVENT DATE: 20180723
